FAERS Safety Report 21526262 (Version 1)
Quarter: 2022Q4

REPORT INFORMATION
  Report Type: Report from Study
  Country: US (occurrence: US)
  Receive Date: 20221031
  Receipt Date: 20221031
  Transmission Date: 20230113
  Serious: No
  Sender: FDA-Public Use
  Company Number: US-ABBVIE-4149327

PATIENT
  Age: 23 Year
  Sex: Female

DRUGS (1)
  1. RINVOQ [Suspect]
     Active Substance: UPADACITINIB
     Indication: Rheumatoid arthritis
     Dosage: EXTENDED RELEASE, FORM STRENGTH: 15 MILLIGRAM
     Route: 048
     Dates: start: 20220509

REACTIONS (5)
  - Paranasal sinus discomfort [Recovering/Resolving]
  - Pain [Recovering/Resolving]
  - Nasal congestion [Recovering/Resolving]
  - Swelling [Recovering/Resolving]
  - Joint effusion [Recovering/Resolving]

NARRATIVE: CASE EVENT DATE: 20220916
